FAERS Safety Report 9920216 (Version 1)
Quarter: 2014Q1

REPORT INFORMATION
  Report Type: Spontaneous
  Country: DE (occurrence: DE)
  Receive Date: 20140224
  Receipt Date: 20140224
  Transmission Date: 20141002
  Serious: Yes (Congenital Anomaly)
  Sender: FDA-Public Use
  Company Number: GXKR2014DE000977

PATIENT
  Sex: 0

DRUGS (4)
  1. SERTRALINE [Suspect]
     Indication: DEPRESSION
     Dosage: 100 MG/DAY
     Route: 064
     Dates: start: 20120407, end: 20121206
  2. LAMOTRIGINE [Suspect]
     Indication: BIPOLAR DISORDER
     Dosage: 200 [MG/D ]/ HIGHER DOSE OF 200 MG/D SINCE WEEK 15
     Route: 064
     Dates: start: 20120407, end: 20121206
  3. L-THYROXIN ^HENNING BERLIN^ [Concomitant]
     Indication: AUTOIMMUNE THYROIDITIS
     Dosage: 75 [?G/D ]
     Route: 064
     Dates: start: 20120407, end: 20121206
  4. CORDES BPO [Concomitant]
     Indication: ACNE
     Route: 064
     Dates: start: 20120407, end: 20120518

REACTIONS (1)
  - Polydactyly [Recovered/Resolved]
